FAERS Safety Report 4518045-X (Version None)
Quarter: 2004Q4

REPORT INFORMATION
  Report Type: 
  Country: None (occurrence: None)
  Receive Date: 20041203
  Receipt Date: 20041110
  Transmission Date: 20050328
  Serious: Yes (Other)
  Sender: FDA-Public Use
  Company Number: CA-GLAXOSMITHKLINE-A0533468A

PATIENT
  Age: 86 Year
  Sex: Male
  Weight: 42.7 kg

DRUGS (3)
  1. AVANDIA [Suspect]
     Indication: DIABETES MELLITUS INADEQUATE CONTROL
     Dosage: 8MG PER DAY
     Route: 048
     Dates: start: 20031117, end: 20041013
  2. INSULIN [Concomitant]
     Indication: DRUG USE FOR UNKNOWN INDICATION
  3. THIAZIDE DIURETIC [Concomitant]
     Indication: DRUG USE FOR UNKNOWN INDICATION

REACTIONS (2)
  - ANAEMIA [None]
  - BLOOD SODIUM DECREASED [None]
